FAERS Safety Report 6020142-7 (Version None)
Quarter: 2008Q4

REPORT INFORMATION
  Report Type: 
  Country: None (occurrence: None)
  Receive Date: 20081223
  Receipt Date: 20081223
  Transmission Date: 20090506
  Serious: Yes (Other)
  Sender: FDA-Public Use
  Company Number: None

PATIENT
  Sex: Female

DRUGS (1)
  1. TIZANIDINE HCL [Suspect]

REACTIONS (3)
  - LEGAL PROBLEM [None]
  - PARAESTHESIA [None]
  - SOMNOLENCE [None]
